FAERS Safety Report 7719178-7 (Version None)
Quarter: 2011Q3

REPORT INFORMATION
  Report Type: 
  Country: None (occurrence: None)
  Receive Date: 20110830
  Receipt Date: 20110826
  Transmission Date: 20111222
  Serious: Yes (Other)
  Sender: FDA-Public Use
  Company Number: GXKR2011DE02073

PATIENT
  Sex: Female
  Weight: 76 kg

DRUGS (5)
  1. BISOPROLOL FUMARATE [Concomitant]
     Indication: HYPERTENSION
     Dosage: 2.5 MG, BID
     Route: 048
     Dates: start: 20050101
  2. ASPIRIN [Concomitant]
     Indication: CARDIAC FAILURE
     Dosage: 100 MG, QD
     Route: 048
     Dates: start: 20080101
  3. SIMAVASTATIN [Concomitant]
     Indication: HYPERCHOLESTEROLAEMIA
     Dosage: 20 MG, QHS
     Route: 048
     Dates: start: 20090101
  4. TAMSULOSIN HCL [Suspect]
     Indication: BLADDER DISORDER
     Dosage: 0.4 MG, QD
     Route: 048
     Dates: start: 20070101
  5. HYDROCHLOROTHIAZIDE [Concomitant]
     Indication: CARDIAC FAILURE
     Dosage: 25 MG, QD
     Dates: start: 20080101

REACTIONS (1)
  - MACULAR DEGENERATION [None]
